FAERS Safety Report 8178883 (Version 5)
Quarter: 2013Q1

REPORT INFORMATION
  Report Type: Report from Study
  Country: US (occurrence: US)
  Receive Date: 20111013
  Receipt Date: 20130208
  Transmission Date: 20140127
  Serious: Yes (Hospitalization)
  Sender: FDA-Public Use
  Company Number: PHHO2011US16520

PATIENT
  Age: 58 Year
  Sex: Female
  Weight: 99.4 kg

DRUGS (12)
  1. CERTICAN [Suspect]
     Indication: RENAL TRANSPLANT
     Dosage: 0.75 MG, BID
     Route: 048
     Dates: start: 20110826, end: 20110829
  2. TACROLIMUS [Suspect]
     Indication: RENAL TRANSPLANT
     Dosage: 2 MG, BID
     Dates: start: 20110826, end: 20110829
  3. TACROLIMUS [Suspect]
     Dosage: 2.5 MG, BID
     Dates: start: 20110913, end: 20110926
  4. ZOCOR [Concomitant]
     Indication: HYPERLIPIDAEMIA
     Dosage: 20 MG, QD
     Route: 048
     Dates: start: 20040921
  5. METOPROLOL [Concomitant]
     Indication: HYPERTENSION
     Dosage: 20 MG, QD
     Route: 048
     Dates: start: 20110607
  6. AMLODIPINE [Concomitant]
     Indication: HYPERTENSION
     Dosage: 10 MG, QD
     Route: 048
     Dates: start: 20061004
  7. CELLCEPT [Concomitant]
     Indication: IMMUNOSUPPRESSION
     Dosage: 1000 MG, BID
     Dates: start: 20110829, end: 20110913
  8. MYFORTIC [Concomitant]
     Indication: IMMUNOSUPPRESSION
     Dosage: 720 MG, BID
     Route: 048
     Dates: start: 20110914
  9. BACTRIM [Concomitant]
     Indication: ANTIBIOTIC PROPHYLAXIS
     Dosage: 1 DF, UNK
     Dates: start: 20110826
  10. ZOLOFT [Concomitant]
     Indication: DEPRESSION
     Dosage: 50 MG, UNK
     Route: 048
  11. VALCYTE [Concomitant]
     Indication: PROPHYLAXIS
     Dosage: UNK
  12. MYCELEX [Concomitant]
     Indication: PROPHYLAXIS

REACTIONS (1)
  - Deep vein thrombosis [Recovered/Resolved with Sequelae]
